FAERS Safety Report 5026686-9 (Version None)
Quarter: 2006Q2

REPORT INFORMATION
  Report Type: 
  Country: None (occurrence: None)
  Receive Date: 20060426
  Receipt Date: 20060309
  Transmission Date: 20061013
  Serious: Yes (Other)
  Sender: FDA-Public Use
  Company Number: 2006037196

PATIENT
  Age: 79 Year
  Sex: Female
  Weight: 99.7913 kg

DRUGS (5)
  1. LYRICA [Suspect]
     Indication: NEUROPATHY
     Dosage: 150 MG (75 MG, 2 IN 1 D)
     Dates: start: 20050101, end: 20050101
  2. DIOVAN [Concomitant]
  3. NIFEDIPINE [Concomitant]
  4. SPIRONOLACTONE [Concomitant]
  5. ATENOLOL [Concomitant]

REACTIONS (1)
  - ABDOMINAL PAIN UPPER [None]
